FAERS Safety Report 22611256 (Version 1)
Quarter: 2023Q2

REPORT INFORMATION
  Report Type: Spontaneous
  Country: US (occurrence: US)
  Receive Date: 20230616
  Receipt Date: 20230616
  Transmission Date: 20230722
  Serious: Yes (Death, Life-Threatening, Other)
  Sender: FDA-Public Use
  Company Number: US-AMGEN-USASP2023102004

PATIENT

DRUGS (3)
  1. BEVACIZUMAB [Suspect]
     Active Substance: BEVACIZUMAB
     Indication: Oesophageal cancer metastatic
     Dosage: 7.5 MILLIGRAM PER KILOGRAM (ADDED ON DAY 1 OF EACH CYCLE)
     Route: 065
  2. TRASTUZUMAB [Suspect]
     Active Substance: TRASTUZUMAB
     Indication: Oesophageal cancer metastatic
     Dosage: 6 MILLIGRAM PER KILOGRAM, Q3WK (DAY 1)
     Route: 065
  3. CAPOX [Concomitant]
     Indication: Oesophageal cancer metastatic
     Dosage: [CAPECITABINE 1200 MILLIGRAM/M2 (DAYS 1-14)] AND [OXALIPLATIN 130 MG/M2 DAY 1]

REACTIONS (6)
  - Death [Fatal]
  - Neuropathy peripheral [Unknown]
  - Hypertension [Unknown]
  - Diarrhoea [Unknown]
  - Drug resistance [Unknown]
  - Off label use [Unknown]
